FAERS Safety Report 16661493 (Version 1)
Quarter: 2019Q3

REPORT INFORMATION
  Report Type: Spontaneous
  Country: GR (occurrence: GR)
  Receive Date: 20190802
  Receipt Date: 20190802
  Transmission Date: 20191004
  Serious: Yes (Other)
  Sender: FDA-Public Use
  Company Number: GR-PFIZER INC-2019328464

PATIENT
  Age: 22 Month
  Sex: Female

DRUGS (9)
  1. IMMUNOGLOBULIN HUMAN [Concomitant]
     Active Substance: HUMAN IMMUNOGLOBULIN G
     Dosage: UNK (A FOURTH DOSE OF INTRAVENOUS IMMUNOGLOBULIN ON DAY 67)
     Route: 042
  2. ASPIRIN [ACETYLSALICYLIC ACID] [Concomitant]
     Active Substance: ASPIRIN
     Indication: KAWASAKI^S DISEASE
     Dosage: 100 MG/KG, 1X/DAY
  3. ASPIRIN [ACETYLSALICYLIC ACID] [Concomitant]
     Active Substance: ASPIRIN
     Indication: ELECTROCARDIOGRAM ABNORMAL
     Dosage: 5 MG/KG, 1X/DAY
  4. IMMUNOGLOBULIN HUMAN [Concomitant]
     Active Substance: HUMAN IMMUNOGLOBULIN G
     Dosage: UNK (A THIRD DOSE OF INTRAVENOUS IMMUNOGLOBULIN)
     Route: 042
  5. ASPIRIN [ACETYLSALICYLIC ACID] [Concomitant]
     Active Substance: ASPIRIN
     Indication: ANTIINFLAMMATORY THERAPY
     Dosage: 5 MG/KG, 1X/DAY
  6. IMMUNOGLOBULIN HUMAN [Concomitant]
     Active Substance: HUMAN IMMUNOGLOBULIN G
     Indication: KAWASAKI^S DISEASE
     Dosage: UNK (1 DOSE, 2 GRAMS PER KILOGRAM)
     Route: 042
  7. IMMUNOGLOBULIN HUMAN [Concomitant]
     Active Substance: HUMAN IMMUNOGLOBULIN G
     Dosage: UNK (SECOND INFUSION OF INTRAVENOUS IMMUNOGLOBULIN WAS ADMINISTERED AFTER 72 HOURS)
     Route: 042
  8. METHYLPREDNISOLONE SODIUM SUCCINATE. [Suspect]
     Active Substance: METHYLPREDNISOLONE SODIUM SUCCINATE
     Indication: KAWASAKI^S DISEASE
     Dosage: 30 MG/KG, 1X/DAY (PULSE)
  9. REMICADE [Concomitant]
     Active Substance: INFLIXIMAB
     Indication: KAWASAKI^S DISEASE
     Dosage: 5 MG/KG, UNK

REACTIONS (1)
  - Thrombocytosis [Unknown]
